FAERS Safety Report 10163537 (Version 2)
Quarter: 2014Q2

REPORT INFORMATION
  Report Type: Spontaneous
  Country: FR (occurrence: FR)
  Receive Date: 20140509
  Receipt Date: 20140519
  Transmission Date: 20141212
  Serious: Yes (Life-Threatening, Hospitalization)
  Sender: FDA-Public Use
  Company Number: FR-ABBVIE-14K-056-1233544-00

PATIENT
  Age: 39 Year
  Sex: Male

DRUGS (11)
  1. NORVIR [Suspect]
     Indication: HIV INFECTION
     Route: 048
     Dates: start: 20140401, end: 20140411
  2. PREZISTA [Suspect]
     Indication: PRODUCT USED FOR UNKNOWN INDICATION
     Route: 048
     Dates: start: 20140401, end: 20140411
  3. ROVALCYTE [Concomitant]
     Indication: RETINITIS
     Dates: start: 201311, end: 20140316
  4. ROVALCYTE [Concomitant]
     Dates: start: 20140404
  5. TRUVADA [Concomitant]
     Indication: PRODUCT USED FOR UNKNOWN INDICATION
     Route: 048
     Dates: start: 20140401, end: 20140411
  6. BACTRIM [Concomitant]
     Indication: PRODUCT USED FOR UNKNOWN INDICATION
     Route: 042
     Dates: start: 20140315, end: 20140410
  7. FOSCAVIR [Concomitant]
     Indication: RETINITIS
     Route: 042
     Dates: start: 20140320, end: 20140410
  8. ROCEPHINE [Concomitant]
     Indication: PRODUCT USED FOR UNKNOWN INDICATION
     Route: 042
     Dates: start: 20140320, end: 20140410
  9. KEPPRA [Concomitant]
     Indication: PRODUCT USED FOR UNKNOWN INDICATION
     Route: 042
     Dates: start: 20140315
  10. AMOXICILLINE [Concomitant]
     Indication: PRODUCT USED FOR UNKNOWN INDICATION
     Dates: start: 20140406, end: 20140407
  11. FOLINATE DE CALCIUM AGUETTANT [Concomitant]
     Indication: PRODUCT USED FOR UNKNOWN INDICATION
     Route: 048
     Dates: start: 20140315

REACTIONS (1)
  - Rash maculo-papular [Recovered/Resolved]
